FAERS Safety Report 14065446 (Version 1)
Quarter: 2017Q4

REPORT INFORMATION
  Report Type: Other
  Country: DK (occurrence: DK)
  Receive Date: 20171009
  Receipt Date: 20171009
  Transmission Date: 20180321
  Serious: Yes (Hospitalization)
  Sender: FDA-Public Use
  Company Number: DK-HIKMA PHARMACEUTICALS CO. LTD-2017DK013386

PATIENT

DRUGS (4)
  1. REMSIMA [Suspect]
     Active Substance: INFLIXIMAB
     Dosage: 300 MG (5 MG/KG), UNK
     Route: 042
     Dates: start: 20170629, end: 20170629
  2. REMSIMA [Suspect]
     Active Substance: INFLIXIMAB
     Indication: CROHN^S DISEASE
     Dosage: 310 MG (5 MG/KG), UNK
     Route: 042
     Dates: start: 20170518, end: 20170518
  3. REMSIMA [Suspect]
     Active Substance: INFLIXIMAB
     Dosage: 5 MG/KG EVERY 8 WEEKS
     Route: 042
     Dates: start: 20170908, end: 20170908
  4. REMSIMA [Suspect]
     Active Substance: INFLIXIMAB
     Dosage: 300 MG (5 MG/KG), UNK
     Route: 042
     Dates: start: 20170601, end: 20170601

REACTIONS (5)
  - Dizziness postural [Recovered/Resolved]
  - Chest discomfort [Recovered/Resolved]
  - Malaise [Recovered/Resolved]
  - Urticaria [Recovered/Resolved]
  - Palpitations [Recovered/Resolved]

NARRATIVE: CASE EVENT DATE: 20170908
